FAERS Safety Report 13056531 (Version 1)
Quarter: 2016Q4

REPORT INFORMATION
  Report Type: Spontaneous
  Country: US (occurrence: US)
  Receive Date: 20161222
  Receipt Date: 20161222
  Transmission Date: 20170207
  Serious: Yes (Other)
  Sender: FDA-Public Use
  Company Number: PHHY2016US174424

PATIENT
  Age: 13 Year
  Sex: Female

DRUGS (3)
  1. TRAMETINIB [Suspect]
     Active Substance: TRAMETINIB
     Indication: PERIPHERAL NERVE SHEATH TUMOUR MALIGNANT
     Route: 065
  2. DEXAMETHASONE. [Concomitant]
     Active Substance: DEXAMETHASONE
     Indication: PRODUCT USED FOR UNKNOWN INDICATION
     Route: 065
  3. EVEROLIMUS [Concomitant]
     Active Substance: EVEROLIMUS
     Indication: PRODUCT USED FOR UNKNOWN INDICATION
     Route: 065

REACTIONS (5)
  - Dermatitis [Recovering/Resolving]
  - Folliculitis [Unknown]
  - Xerosis [Recovering/Resolving]
  - Product use issue [Unknown]
  - Dermatitis acneiform [Unknown]
